FAERS Safety Report 7246501-2 (Version None)
Quarter: 2011Q1

REPORT INFORMATION
  Report Type: 
  Country: None (occurrence: None)
  Receive Date: 20110126
  Receipt Date: 20110113
  Transmission Date: 20110831
  Serious: Yes (Disabling)
  Sender: FDA-Public Use
  Company Number: JP-MYLANLABS-2011S1001030

PATIENT
  Age: 37 Year
  Sex: Female

DRUGS (4)
  1. PROCHLORPERAZINE [Suspect]
     Indication: VOMITING
     Route: 065
  2. OXYCODONE [Concomitant]
     Route: 065
  3. PROCHLORPERAZINE [Suspect]
     Route: 065
  4. OXYCODONE [Concomitant]
     Indication: PAIN
     Route: 065

REACTIONS (5)
  - ANXIETY [None]
  - DECREASED APPETITE [None]
  - INSOMNIA [None]
  - AKATHISIA [None]
  - DEPRESSION [None]
